FAERS Safety Report 23564259 (Version 1)
Quarter: 2024Q1

REPORT INFORMATION
  Report Type: Report from Study
  Country: GB (occurrence: GB)
  Receive Date: 20240226
  Receipt Date: 20240226
  Transmission Date: 20240410
  Serious: Yes (Hospitalization, Other)
  Sender: FDA-Public Use
  Company Number: GB-TAKEDA-2024TUS016228

PATIENT
  Sex: Male
  Weight: 34 kg

DRUGS (1)
  1. VEDOLIZUMAB [Suspect]
     Active Substance: VEDOLIZUMAB
     Indication: Inflammatory bowel disease
     Dosage: 300 MILLIGRAM
     Route: 042
     Dates: start: 20231003

REACTIONS (3)
  - Colitis ulcerative [Unknown]
  - Therapy partial responder [Unknown]
  - Off label use [Unknown]
